FAERS Safety Report 24246418 (Version 1)
Quarter: 2024Q3

REPORT INFORMATION
  Report Type: Spontaneous
  Country: US (occurrence: US)
  Receive Date: 20240825
  Receipt Date: 20240825
  Transmission Date: 20241017
  Serious: Yes (Other)
  Sender: DR REDDYS
  Company Number: US-E2BLSMVVAL-SPO/USA/24/0012198

PATIENT
  Age: 37 Year
  Sex: Female

DRUGS (2)
  1. DILTIAZEM [Suspect]
     Active Substance: DILTIAZEM
     Indication: Product used for unknown indication
     Route: 065
  2. VOCLOSPORIN [Suspect]
     Active Substance: VOCLOSPORIN
     Indication: Lupus nephritis
     Dosage: TWICE DAILY ORALLY
     Route: 048
     Dates: start: 20240404

REACTIONS (4)
  - Urine protein/creatinine ratio increased [Unknown]
  - Glomerular filtration rate decreased [Unknown]
  - Oedema [Unknown]
  - Drug interaction [Unknown]

NARRATIVE: CASE EVENT DATE: 20240611
